FAERS Safety Report 5671426-3 (Version None)
Quarter: 2008Q1

REPORT INFORMATION
  Report Type: 
  Country: None (occurrence: None)
  Receive Date: 20080313
  Receipt Date: 20080303
  Transmission Date: 20080703
  Serious: Yes (Hospitalization, Other)
  Sender: FDA-Public Use
  Company Number: 2006VX001792

PATIENT
  Age: 90 Year
  Sex: Male

DRUGS (5)
  1. TASMAR [Suspect]
     Indication: PARKINSON'S DISEASE
     Dosage: 300 MG; QD; PO
     Route: 048
     Dates: start: 19980115, end: 19980425
  2. SINEMET CR [Concomitant]
  3. BROMOCRIPTINE MESYLATE [Concomitant]
  4. DOCUSATE [Concomitant]
  5. DOMPERIDONE [Concomitant]

REACTIONS (6)
  - BLOOD ALBUMIN DECREASED [None]
  - BLOOD CREATININE INCREASED [None]
  - BLOOD UREA INCREASED [None]
  - DYSPNOEA [None]
  - HALLUCINATION [None]
  - OEDEMA PERIPHERAL [None]
